FAERS Safety Report 7408489-0 (Version None)
Quarter: 2011Q2

REPORT INFORMATION
  Report Type: 
  Country: None (occurrence: None)
  Receive Date: 20110412
  Receipt Date: 20110404
  Transmission Date: 20111010
  Serious: Yes (Hospitalization)
  Sender: FDA-Public Use
  Company Number: IT-SANOFI-AVENTIS-2011SA020062

PATIENT
  Age: 61 Year
  Sex: Female

DRUGS (8)
  1. PEPTAZOL [Concomitant]
     Dosage: DOSE:1 UNIT(S)
     Route: 048
  2. BECLOMETHASONE W/FENOTEROL [Concomitant]
     Route: 055
  3. LEVOPRAID [Concomitant]
     Route: 048
  4. SPIRIVA [Concomitant]
     Dosage: DOSE:1 UNIT(S)
     Route: 055
  5. TOTALIP [Concomitant]
     Dosage: DOSE:1 UNIT(S)
     Route: 048
  6. IBUSTRIN [Concomitant]
     Dosage: DOSE:2 UNIT(S)
     Route: 048
  7. MULTAQ [Suspect]
     Indication: ARRHYTHMIA
     Route: 048
     Dates: start: 20110223, end: 20110308
  8. AMINO ACIDS [Concomitant]
     Route: 065

REACTIONS (2)
  - RENAL FAILURE ACUTE [None]
  - BRADYCARDIA [None]
